FAERS Safety Report 11694174 (Version 1)
Quarter: 2015Q4

REPORT INFORMATION
  Report Type: Spontaneous
  Country: CZ (occurrence: CZ)
  Receive Date: 20151103
  Receipt Date: 20151103
  Transmission Date: 20160304
  Serious: Yes (Death)
  Sender: FDA-Public Use
  Company Number: CZ-ABBVIE-15P-217-1491523-00

PATIENT
  Age: 65 Year
  Sex: Female

DRUGS (5)
  1. TULIP [Suspect]
     Active Substance: ATORVASTATIN
     Indication: PRODUCT USED FOR UNKNOWN INDICATION
     Dosage: 80 TABLETS
     Route: 048
  2. EBRANTIL [Suspect]
     Active Substance: URAPIDIL
     Indication: PRODUCT USED FOR UNKNOWN INDICATION
     Dosage: 250 CAPSULES
     Route: 048
  3. ARTRODAR [Suspect]
     Active Substance: DIACEREIN
     Indication: PRODUCT USED FOR UNKNOWN INDICATION
     Dosage: 80 CAPSULES
     Route: 048
  4. VERAPAMIL/TRANDOLAPRIL [Suspect]
     Active Substance: TRANDOLAPRIL\VERAPAMIL
     Indication: PRODUCT USED FOR UNKNOWN INDICATION
     Dosage: 42 TABLETS
     Route: 048
  5. MOXOGAMMA [Suspect]
     Active Substance: MOXONIDINE
     Indication: PRODUCT USED FOR UNKNOWN INDICATION
     Dosage: 50 TABLETS
     Route: 048

REACTIONS (9)
  - Cardiogenic shock [Fatal]
  - Acute kidney injury [Fatal]
  - Renal tubular necrosis [None]
  - Overdose [Fatal]
  - Alcohol poisoning [None]
  - Loss of consciousness [None]
  - Rhabdomyolysis [None]
  - Poisoning deliberate [None]
  - Cardiomyopathy [None]
